FAERS Safety Report 7479402-5 (Version None)
Quarter: 2011Q2

REPORT INFORMATION
  Report Type: 
  Country: None (occurrence: None)
  Receive Date: 20110513
  Receipt Date: 20110428
  Transmission Date: 20111010
  Serious: Yes (Hospitalization, Other)
  Sender: FDA-Public Use
  Company Number: FR-PFIZER INC-2011093633

PATIENT
  Age: 82 Year
  Sex: Female

DRUGS (10)
  1. ARICEPT [Suspect]
     Indication: DEMENTIA ALZHEIMER'S TYPE
     Dosage: 10 MG, 1X/DAY
     Route: 048
     Dates: end: 20110118
  2. ATARAX [Suspect]
     Dosage: 12.5 MG, 1X/DAY
     Route: 048
     Dates: end: 20110101
  3. ARICEPT [Suspect]
     Dosage: 12.5 MG, UNK
     Route: 048
  4. ATARAX [Suspect]
     Dosage: 25 MG, UNK
  5. OMEPRAZOLE [Concomitant]
     Dosage: 20 MG, UNK
  6. ATENOLOL [Suspect]
     Dosage: 100 MG, 1X/DAY
     Route: 048
     Dates: end: 20110117
  7. ATENOLOL [Suspect]
     Dosage: 50 MG, 1X/DAY
     Route: 048
     Dates: start: 20110118
  8. STABLON [Suspect]
     Dosage: 12.5 MG, 2X/DAY
     Route: 048
     Dates: end: 20110101
  9. LORAZEPAM [Suspect]
     Dosage: 1 MG, 1X/DAY
     Route: 048
     Dates: end: 20110101
  10. PRAVASTATIN [Concomitant]

REACTIONS (6)
  - BRADYCARDIA [None]
  - DISORIENTATION [None]
  - DEHYDRATION [None]
  - HYPERNATRAEMIA [None]
  - ABNORMAL BEHAVIOUR [None]
  - ANOSOGNOSIA [None]
